FAERS Safety Report 19768956 (Version 3)
Quarter: 2022Q1

REPORT INFORMATION
  Report Type: Spontaneous
  Country: DE (occurrence: DE)
  Receive Date: 20210831
  Receipt Date: 20220127
  Transmission Date: 20220423
  Serious: Yes (Other)
  Sender: FDA-Public Use
  Company Number: None

PATIENT
  Age: 69 Year
  Sex: Male
  Weight: 83 kg

DRUGS (2)
  1. CIPROFLOXACIN [Suspect]
     Active Substance: CIPROFLOXACIN
     Indication: Prostatitis
     Dosage: 500 MG, Q12H (2 X 500MG PRO TAG)
     Route: 048
     Dates: start: 20210630, end: 20210713
  2. RAMIPRIL [Concomitant]
     Active Substance: RAMIPRIL
     Indication: Hypertension
     Dosage: 5 MG, QD (FOR 2 YEARS:UNIT DOSE:5MILLIGRAM)
     Route: 065

REACTIONS (10)
  - Muscle haemorrhage [Recovering/Resolving]
  - Mobility decreased [Recovering/Resolving]
  - Peripheral swelling [Recovering/Resolving]
  - Pain in extremity [Recovering/Resolving]
  - Tendon pain [Recovering/Resolving]
  - Tendon discomfort [Recovering/Resolving]
  - Gait disturbance [Recovering/Resolving]
  - Pain [Unknown]
  - Pain in extremity [Recovering/Resolving]
  - Drug ineffective [Unknown]

NARRATIVE: CASE EVENT DATE: 20210101
